FAERS Safety Report 6307956-0 (Version None)
Quarter: 2009Q3

REPORT INFORMATION
  Report Type: 
  Country: None (occurrence: None)
  Receive Date: 20090813
  Receipt Date: 20090803
  Transmission Date: 20100115
  Serious: Yes (Hospitalization, Other)
  Sender: FDA-Public Use
  Company Number: US-ROCHE-596586

PATIENT
  Sex: Male
  Weight: 72.6 kg

DRUGS (6)
  1. ACCUTANE [Suspect]
     Route: 048
     Dates: start: 20011029, end: 20020201
  2. ACCUTANE [Suspect]
     Route: 048
     Dates: start: 20020724, end: 20021119
  3. ACCUTANE [Suspect]
     Dosage: ACCUTANE 40 MG DAILY
     Route: 048
     Dates: start: 20021120, end: 20021226
  4. ACCUTANE [Suspect]
     Route: 048
     Dates: start: 20021227, end: 20030201
  5. ACCUTANE [Suspect]
     Dosage: THE PATIENT WAS TAKING ACCUTANE 40 MG.
     Route: 048
     Dates: start: 20031223, end: 20040201
  6. AMNESTEEM [Suspect]
     Indication: ACNE
     Dosage: THE PATIENT HAD USED AMNESTEEM 40 MG.
     Route: 065
     Dates: start: 20040401, end: 20040701

REACTIONS (5)
  - ANKLE FRACTURE [None]
  - COLITIS ULCERATIVE [None]
  - INFLAMMATORY BOWEL DISEASE [None]
  - LOWER LIMB FRACTURE [None]
  - STRESS [None]
